FAERS Safety Report 24995794 (Version 1)
Quarter: 2025Q1

REPORT INFORMATION
  Report Type: Other
  Country: CA (occurrence: None)
  Receive Date: 20250221
  Receipt Date: 20250221
  Transmission Date: 20250409
  Serious: Yes (Other)
  Sender: INCYTE
  Company Number: CA-002147023-NVSC2025CA028695

PATIENT
  Age: 70 Year

DRUGS (2)
  1. RUXOLITINIB [Suspect]
     Active Substance: RUXOLITINIB
     Indication: Product used for unknown indication
     Route: 065
  2. EPOETIN ALFA [Suspect]
     Active Substance: ERYTHROPOIETIN
     Indication: Anaemia of chronic disease

REACTIONS (2)
  - Neoplasm malignant [Unknown]
  - Pulmonary thrombosis [Unknown]
